FAERS Safety Report 7459494-X (Version None)
Quarter: 2011Q2

REPORT INFORMATION
  Report Type: 
  Country: None (occurrence: None)
  Receive Date: 20110504
  Receipt Date: 20110504
  Transmission Date: 20111010
  Serious: Yes (Other)
  Sender: FDA-Public Use
  Company Number: None

PATIENT
  Age: 46 Year
  Sex: Male
  Weight: 86.3 kg

DRUGS (1)
  1. CEFTAROLINE 600MG [Suspect]
     Indication: OSTEOMYELITIS
     Dosage: 600MG Q12 H IV
     Route: 042
     Dates: start: 20110319, end: 20110422

REACTIONS (1)
  - PANCYTOPENIA [None]
